FAERS Safety Report 5838124-4 (Version None)
Quarter: 2008Q3

REPORT INFORMATION
  Report Type: 
  Country: None (occurrence: None)
  Receive Date: 20080808
  Receipt Date: 20080730
  Transmission Date: 20090109
  Serious: Yes (Other)
  Sender: FDA-Public Use
  Company Number: US-JNJFOC-20080800140

PATIENT
  Sex: Female
  Weight: 44 kg

DRUGS (6)
  1. FENTANYL TRANSDERMAL SYSTEM [Suspect]
     Route: 062
  2. FENTANYL TRANSDERMAL SYSTEM [Suspect]
     Route: 062
  3. FENTANYL TRANSDERMAL SYSTEM [Suspect]
     Indication: OSTEOPOROSIS
     Route: 062
  4. VICODIN [Concomitant]
     Indication: BREAKTHROUGH PAIN
     Dosage: 7.5MG/750 5-6 HOURS AS NEEDED
     Route: 048
  5. KLONOPIN [Concomitant]
     Route: 048
  6. KLONOPIN [Concomitant]
     Indication: ANXIETY
     Dosage: IN THE MORNING
     Route: 048

REACTIONS (3)
  - CHRONIC OBSTRUCTIVE PULMONARY DISEASE [None]
  - TREATMENT NONCOMPLIANCE [None]
  - WRONG TECHNIQUE IN DRUG USAGE PROCESS [None]
